FAERS Safety Report 19475439 (Version 1)
Quarter: 2021Q2

REPORT INFORMATION
  Report Type: Spontaneous
  Country: PT (occurrence: PT)
  Receive Date: 20210630
  Receipt Date: 20210630
  Transmission Date: 20210717
  Serious: Yes (Other)
  Sender: FDA-Public Use
  Company Number: PT-AMGEN-PRTSP2021096444

PATIENT
  Age: 74 Year
  Sex: Female

DRUGS (5)
  1. COZAAR [Concomitant]
     Active Substance: LOSARTAN POTASSIUM
     Dosage: UNK
     Route: 048
  2. DEDROGYL [Concomitant]
     Active Substance: CALCIFEDIOL
     Dosage: AT LUNCH
     Route: 048
  3. PROLIA [Suspect]
     Active Substance: DENOSUMAB
     Indication: PRODUCT USED FOR UNKNOWN INDICATION
     Dosage: 120 MILLIGRAM, Q6MO
     Route: 058
     Dates: start: 20200226, end: 20200818
  4. LORSEDAL [Concomitant]
     Active Substance: LORAZEPAM
     Dosage: UNK
     Route: 048
  5. CALCIUM D SANDOZ [Concomitant]
     Dosage: UNK
     Route: 048

REACTIONS (2)
  - Osteitis [Recovered/Resolved with Sequelae]
  - Pain in jaw [Recovered/Resolved with Sequelae]
